FAERS Safety Report 6988383-X (Version None)
Quarter: 2010Q3

REPORT INFORMATION
  Report Type: 
  Country: None (occurrence: None)
  Receive Date: 20100916
  Receipt Date: 20100909
  Transmission Date: 20110219
  Serious: Yes (Hospitalization)
  Sender: FDA-Public Use
  Company Number: US-MERCK-1009USA01627

PATIENT
  Sex: Female

DRUGS (1)
  1. INVANZ [Suspect]
     Indication: INFECTION
     Route: 042

REACTIONS (3)
  - ADVERSE EVENT [None]
  - CONVULSION [None]
  - INFECTION [None]
